FAERS Safety Report 5955467-4 (Version None)
Quarter: 2008Q4

REPORT INFORMATION
  Report Type: 
  Country: None (occurrence: None)
  Receive Date: 20081031
  Receipt Date: 20080723
  Transmission Date: 20090506
  Serious: No
  Sender: FDA-Public Use
  Company Number: 2008PV036256

PATIENT
  Sex: Female

DRUGS (4)
  1. SYMLIN [Suspect]
     Indication: TYPE 2 DIABETES MELLITUS
     Dosage: 30 MCG; QD; SC, 30 MCG; QD; SC
     Route: 058
     Dates: start: 20080722
  2. SYMLIN [Suspect]
     Indication: TYPE 2 DIABETES MELLITUS
     Dosage: 30 MCG; QD; SC, 30 MCG; QD; SC
     Route: 058
     Dates: start: 20080722
  3. SYMLIN [Suspect]
     Indication: TYPE 2 DIABETES MELLITUS
     Dosage: 240 MCG; BID; SC, 180 MCG; BID; SC
     Route: 058
     Dates: start: 20060101, end: 20060101
  4. SYMLIN [Suspect]
     Indication: TYPE 2 DIABETES MELLITUS
     Dosage: 240 MCG; BID; SC, 180 MCG; BID; SC
     Route: 058
     Dates: start: 20060101, end: 20080701

REACTIONS (1)
  - INJECTION SITE IRRITATION [None]
